FAERS Safety Report 6608673-X (Version None)
Quarter: 2010Q1

REPORT INFORMATION
  Report Type: 
  Country: None (occurrence: None)
  Receive Date: 20100301
  Receipt Date: 20100218
  Transmission Date: 20100710
  Serious: No
  Sender: FDA-Public Use
  Company Number: US-BAXTER-2010BH002467

PATIENT
  Age: 63 Year
  Sex: Male

DRUGS (1)
  1. DIANEAL [Suspect]
     Indication: PERITONEAL DIALYSIS
     Route: 033
     Dates: start: 20100129

REACTIONS (3)
  - ABDOMINAL PAIN [None]
  - CHEST PAIN [None]
  - DYSPNOEA [None]
